FAERS Safety Report 9871325 (Version 1)
Quarter: 2014Q1

REPORT INFORMATION
  Report Type: Spontaneous
  Country: CA (occurrence: CA)
  Receive Date: 20140205
  Receipt Date: 20140205
  Transmission Date: 20141002
  Serious: Yes (Other)
  Sender: FDA-Public Use
  Company Number: CA-ABBVIE-14P-028-1197729-00

PATIENT
  Age: 54 Year
  Sex: Male

DRUGS (21)
  1. NORVIR [Suspect]
     Indication: PRODUCT USED FOR UNKNOWN INDICATION
  2. KALETRA [Suspect]
     Indication: PRODUCT USED FOR UNKNOWN INDICATION
  3. ABACAVIR SUCCINATE [Suspect]
     Indication: PRODUCT USED FOR UNKNOWN INDICATION
  4. ATAZANAVIR SULFATE [Suspect]
     Indication: PRODUCT USED FOR UNKNOWN INDICATION
  5. ATAZANAVIR SULFATE [Suspect]
  6. ENFUVIRTIDE [Suspect]
     Indication: PRODUCT USED FOR UNKNOWN INDICATION
  7. INDINAVIR SULFATE [Suspect]
     Indication: PRODUCT USED FOR UNKNOWN INDICATION
  8. LAMIVUDINE [Suspect]
     Indication: PRODUCT USED FOR UNKNOWN INDICATION
  9. LAMIVUDINE [Suspect]
  10. LAMIVUDINE [Suspect]
  11. SAQUINAVIR [Suspect]
     Indication: PRODUCT USED FOR UNKNOWN INDICATION
  12. STAVUDINE-D4T [Suspect]
     Indication: PRODUCT USED FOR UNKNOWN INDICATION
  13. TENOFOVIR [Suspect]
     Indication: PRODUCT USED FOR UNKNOWN INDICATION
  14. VIDEX EC [Suspect]
     Indication: PRODUCT USED FOR UNKNOWN INDICATION
  15. VIDEX EC [Suspect]
  16. VIDEX EC [Suspect]
  17. VIRAMUNE [Suspect]
     Indication: PRODUCT USED FOR UNKNOWN INDICATION
  18. VIRAMUNE [Suspect]
  19. VIRAMUNE [Suspect]
  20. ZERIT [Suspect]
     Indication: PRODUCT USED FOR UNKNOWN INDICATION
  21. ZIDOVUDINE [Suspect]
     Indication: PRODUCT USED FOR UNKNOWN INDICATION

REACTIONS (7)
  - Blood lactic acid increased [Not Recovered/Not Resolved]
  - Diplopia [Not Recovered/Not Resolved]
  - Dysphagia [Not Recovered/Not Resolved]
  - Eyelid ptosis [Not Recovered/Not Resolved]
  - Lipodystrophy acquired [Not Recovered/Not Resolved]
  - Mitochondrial toxicity [Not Recovered/Not Resolved]
  - Progressive external ophthalmoplegia [Not Recovered/Not Resolved]
